FAERS Safety Report 14035002 (Version 1)
Quarter: 2017Q4

REPORT INFORMATION
  Report Type: Spontaneous
  Country: US (occurrence: US)
  Receive Date: 20171003
  Receipt Date: 20171003
  Transmission Date: 20180321
  Serious: No
  Sender: FDA-Public Use
  Company Number: US-PERRIGO-16US021069

PATIENT
  Age: 6 Year
  Sex: Male
  Weight: 31.75 kg

DRUGS (1)
  1. CHILDRENS CETIRIZINE HYDROCHLORIDE ALLERGY [Suspect]
     Active Substance: CETIRIZINE HYDROCHLORIDE
     Indication: SEASONAL ALLERGY
     Dosage: 5 MG, NIGHTLY
     Route: 048
     Dates: start: 201610, end: 20161017

REACTIONS (3)
  - Abnormal behaviour [Not Recovered/Not Resolved]
  - Nightmare [Not Recovered/Not Resolved]
  - Poor quality sleep [Not Recovered/Not Resolved]

NARRATIVE: CASE EVENT DATE: 201610
